FAERS Safety Report 13372884 (Version 1)
Quarter: 2017Q1

REPORT INFORMATION
  Report Type: Spontaneous
  Country: US (occurrence: US)
  Receive Date: 20170326
  Receipt Date: 20170326
  Transmission Date: 20170429
  Serious: No
  Sender: FDA-Public Use
  Company Number: None

PATIENT

DRUGS (1)
  1. SULFACETAMIDE SODIUM. [Suspect]
     Active Substance: SULFACETAMIDE SODIUM

REACTIONS (3)
  - Cough [None]
  - Oropharyngeal pain [None]
  - Pharyngeal oedema [None]

NARRATIVE: CASE EVENT DATE: 20170325
